FAERS Safety Report 12590493 (Version 2)
Quarter: 2016Q3

REPORT INFORMATION
  Report Type: Report from Study
  Country: US (occurrence: US)
  Receive Date: 20160725
  Receipt Date: 20160728
  Transmission Date: 20161109
  Serious: Yes (Hospitalization, Other)
  Sender: FDA-Public Use
  Company Number: US-TAKEDA-2016TUS012862

PATIENT
  Age: 80 Year
  Sex: Male
  Weight: 80.7 kg

DRUGS (39)
  1. PLAVIX [Concomitant]
     Active Substance: CLOPIDOGREL BISULFATE
     Indication: ISCHAEMIC HEART DISEASE PROPHYLAXIS
     Dosage: 75 MG, QD
     Route: 048
     Dates: start: 2007
  2. METOPROLOL ER [Concomitant]
     Active Substance: METOPROLOL SUCCINATE
     Indication: HYPERTENSION
     Dosage: 50 MG, QD
     Route: 048
     Dates: start: 2007
  3. ACETAMINOPHEN. [Concomitant]
     Active Substance: ACETAMINOPHEN
     Dosage: 650 MG, QD
     Route: 048
     Dates: start: 20160528, end: 20160615
  4. BLINDED ALLOPURINOL [Suspect]
     Active Substance: ALLOPURINOL
     Indication: HYPERURICAEMIA
     Dosage: UNK, QD
     Route: 048
     Dates: start: 20110204
  5. ASPIRIN. [Concomitant]
     Active Substance: ASPIRIN
     Indication: ISCHAEMIC HEART DISEASE PROPHYLAXIS
     Dosage: 81 MG, QD
     Route: 048
     Dates: start: 2006
  6. 0.9% NACL [Concomitant]
     Active Substance: SODIUM CHLORIDE
     Dosage: 3 ML,
     Route: 042
     Dates: start: 20160528, end: 20160615
  7. TRAMADOL. [Concomitant]
     Active Substance: TRAMADOL
     Indication: RADICULOPATHY
     Dosage: 50 MG, UNK
     Route: 048
     Dates: start: 20160527, end: 20160528
  8. PREDNISONE. [Concomitant]
     Active Substance: PREDNISONE
     Indication: RADICULOPATHY
     Dosage: 20 MG, QD
     Route: 048
     Dates: start: 20160527, end: 20160528
  9. AMIODARONE [Concomitant]
     Active Substance: AMIODARONE
     Indication: ATRIAL FIBRILLATION
     Dosage: UNK
     Route: 042
     Dates: start: 20160530, end: 20160615
  10. BLINDED FEBUXOSTAT [Suspect]
     Active Substance: FEBUXOSTAT
     Indication: HYPERURICAEMIA
     Dosage: UNK, QD
     Route: 048
     Dates: start: 20110204
  11. ACETAMINOPHEN. [Concomitant]
     Active Substance: ACETAMINOPHEN
     Indication: ARTHRALGIA
     Dosage: 250 MG, QD
     Route: 048
     Dates: start: 20150515
  12. 0.9% NACL [Concomitant]
     Active Substance: SODIUM CHLORIDE
     Dosage: 3 ML, UNK
     Route: 050
     Dates: start: 20160531, end: 20160615
  13. PIPERACILLIN/TAZOBACTAM [Concomitant]
     Active Substance: PIPERACILLIN SODIUM\TAZOBACTAM SODIUM
     Indication: PNEUMONIA
     Dosage: 3.375 G, Q6HR
     Route: 042
     Dates: start: 20160531, end: 20160615
  14. POTASSIUM PHOSPHATE                /00493501/ [Concomitant]
     Active Substance: POTASSIUM PHOSPHATE, DIBASIC
     Indication: ACUTE KIDNEY INJURY
     Dosage: 30 MMOL, UNK
     Route: 042
     Dates: start: 20160531, end: 20160615
  15. ISOSORBID MONONITRATE [Concomitant]
     Active Substance: ISOSORBIDE MONONITRATE
     Indication: CARDIOVASCULAR EVENT PROPHYLAXIS
     Dosage: 30 MG, QD
     Route: 048
     Dates: start: 2000
  16. AMLODIPINE [Concomitant]
     Active Substance: AMLODIPINE BESYLATE
     Indication: HYPERTENSION
     Dosage: 5 MG, QD
     Route: 048
     Dates: start: 20110120
  17. LOTRISONE [Concomitant]
     Active Substance: BETAMETHASONE DIPROPIONATE\CLOTRIMAZOLE
     Indication: RASH
     Dosage: UNK, BID
     Route: 061
     Dates: start: 201507
  18. METHOCARBAMOL. [Concomitant]
     Active Substance: METHOCARBAMOL
     Dosage: 500 MG, UNK
     Route: 048
     Dates: start: 201404
  19. VANCOMYCIN [Concomitant]
     Active Substance: VANCOMYCIN
     Indication: SEPSIS
     Dosage: 1250 MG, QD
     Route: 042
     Dates: start: 20160530, end: 20160615
  20. LEVOFLOXACIN. [Concomitant]
     Active Substance: LEVOFLOXACIN
     Indication: PNEUMONIA
     Dosage: 750 MG, Q8HR
     Route: 042
     Dates: start: 20160530, end: 20160615
  21. LIPITOR [Concomitant]
     Active Substance: ATORVASTATIN CALCIUM
     Indication: ISCHAEMIC HEART DISEASE PROPHYLAXIS
     Dosage: 40 MG, QD
     Route: 048
     Dates: start: 2000
  22. CAFFEINE AID [Concomitant]
     Indication: ARTHRALGIA
     Dosage: 65 MG, QD
     Route: 048
     Dates: start: 20150515
  23. ASTELIN [Concomitant]
     Active Substance: AZELASTINE HYDROCHLORIDE
     Indication: SEASONAL ALLERGY
     Dosage: 1 UNITS, BID
     Route: 055
     Dates: start: 201507
  24. 0.9% NACL [Concomitant]
     Active Substance: SODIUM CHLORIDE
     Dosage: 3 ML, Q8HR
     Route: 042
     Dates: start: 20160531, end: 20160615
  25. DOXYCYCLINE. [Concomitant]
     Active Substance: DOXYCYCLINE
     Indication: ACUTE KIDNEY INJURY
     Dosage: 100 MG, UNK
     Route: 042
     Dates: start: 20160531, end: 20160615
  26. DIGOXIN. [Concomitant]
     Active Substance: DIGOXIN
     Indication: ATRIAL FIBRILLATION
     Dosage: 0.125 MG, QD
     Route: 042
     Dates: start: 20160530, end: 20160615
  27. PANTOPRAZOLE [Concomitant]
     Active Substance: PANTOPRAZOLE SODIUM
     Indication: PNEUMONIA
     Dosage: 40 MG, QD
     Route: 048
     Dates: start: 20160531, end: 20160615
  28. IRON [Concomitant]
     Active Substance: IRON
     Dosage: 2000 UNITS, QD
     Route: 048
     Dates: start: 2014
  29. ACETAMINOPHEN. [Concomitant]
     Active Substance: ACETAMINOPHEN
     Indication: PNEUMONIA
     Dosage: 650 MG, UNK
     Route: 048
     Dates: start: 20160528, end: 20160615
  30. NOREPINEPHRINE [Concomitant]
     Active Substance: NOREPINEPHRINE\NOREPINEPHRINE BITARTRATE
     Indication: SEPSIS
     Dosage: UNK
     Route: 042
     Dates: start: 20160531, end: 20160615
  31. LISINOPRIL. [Concomitant]
     Active Substance: LISINOPRIL
     Indication: HYPERTENSION
     Dosage: 40 MG, QD
     Route: 048
     Dates: start: 2007
  32. ASPIRIN. [Concomitant]
     Active Substance: ASPIRIN
     Indication: ARTHRALGIA
     Dosage: 250 MG, QD
     Route: 048
     Dates: start: 20150515
  33. ALLEGRA [Concomitant]
     Active Substance: FEXOFENADINE HYDROCHLORIDE
     Indication: SEASONAL ALLERGY
     Dosage: 60 MG, BID
     Route: 048
     Dates: start: 201406
  34. NIZORAL [Concomitant]
     Active Substance: KETOCONAZOLE
     Indication: RASH
     Dosage: UNK, QD
     Route: 061
     Dates: start: 201507
  35. 0.9% NACL [Concomitant]
     Active Substance: SODIUM CHLORIDE
     Indication: DEHYDRATION
     Dosage: 3 ML, Q8HR
     Route: 042
     Dates: start: 20160531, end: 20160615
  36. CYCLOBENZAPRINE [Concomitant]
     Active Substance: CYCLOBENZAPRINE
     Indication: HEADACHE
     Dosage: 10 MG, UNK
     Route: 048
     Dates: start: 20160510
  37. CENTRUM [Concomitant]
     Active Substance: VITAMINS
     Indication: NUTRITIONAL SUPPLEMENTATION
     Dosage: UNK UNK, QD
     Route: 048
     Dates: start: 2008
  38. CLOPIDOGREL [Concomitant]
     Active Substance: CLOPIDOGREL BISULFATE
     Indication: ATRIAL FIBRILLATION
     Dosage: 75 MG, QD
     Route: 048
     Dates: start: 20160531, end: 20160615
  39. DIAZEPAM. [Concomitant]
     Active Substance: DIAZEPAM
     Indication: RADICULOPATHY
     Dosage: 5 MG, UNK
     Route: 048
     Dates: start: 20160527, end: 20160528

REACTIONS (9)
  - Fall [Recovered/Resolved]
  - Hypomagnesaemia [Recovered/Resolved]
  - Laceration [Recovered/Resolved]
  - Cough [Recovered/Resolved]
  - Subarachnoid haemorrhage [Recovered/Resolved]
  - Haemorrhage intracranial [Recovered/Resolved]
  - Ventricular tachycardia [Recovered/Resolved]
  - Syncope [Recovered/Resolved]
  - Leukocytosis [Recovered/Resolved]

NARRATIVE: CASE EVENT DATE: 20160628
